FAERS Safety Report 13622078 (Version 1)
Quarter: 2017Q2

REPORT INFORMATION
  Report Type: Spontaneous
  Country: US (occurrence: US)
  Receive Date: 20170607
  Receipt Date: 20170607
  Transmission Date: 20170830
  Serious: No
  Sender: FDA-Public Use
  Company Number: US-ROCHE-694585

PATIENT
  Age: 58 Year
  Sex: Male
  Weight: 63.5 kg

DRUGS (3)
  1. NORVIR [Concomitant]
     Active Substance: RITONAVIR
     Route: 065
  2. TRUVADA [Concomitant]
     Active Substance: EMTRICITABINE\TENOFOVIR DISOPROXIL FUMARATE
     Route: 065
  3. FUZEON [Suspect]
     Active Substance: ENFUVIRTIDE
     Indication: HIV INFECTION
     Route: 065

REACTIONS (1)
  - Injection site inflammation [Unknown]

NARRATIVE: CASE EVENT DATE: 20100315
